FAERS Safety Report 13419000 (Version 3)
Quarter: 2022Q3

REPORT INFORMATION
  Report Type: Spontaneous
  Country: US (occurrence: US)
  Receive Date: 20170407
  Receipt Date: 20220908
  Transmission Date: 20221026
  Serious: Yes (Other)
  Sender: FDA-Public Use
  Company Number: US-JNJFOC-20170317740

PATIENT
  Sex: Male
  Weight: 115.77 kg

DRUGS (8)
  1. RISPERDAL [Suspect]
     Active Substance: RISPERIDONE
     Indication: Psychotic disorder
     Route: 048
  2. RISPERIDONE [Suspect]
     Active Substance: RISPERIDONE
     Indication: Psychotic disorder
     Route: 048
     Dates: start: 20080923
  3. RISPERIDONE [Suspect]
     Active Substance: RISPERIDONE
     Dosage: VARYING DOSES OF 0.5 MG,  1MG , 2 MG, 3 MG, 4 MG
     Route: 048
     Dates: start: 20100323, end: 20140710
  4. RISPERIDONE [Suspect]
     Active Substance: RISPERIDONE
     Route: 048
     Dates: start: 20120410, end: 20141007
  5. INVEGA [Suspect]
     Active Substance: PALIPERIDONE
     Indication: Psychotic disorder
     Dosage: ORIGINALLY ON 06 MG AND WAS MAINTAINED ON 03 MG FOR A WHILE
     Route: 048
     Dates: start: 20080923
  6. INVEGA [Suspect]
     Active Substance: PALIPERIDONE
     Route: 048
     Dates: start: 20100323, end: 20111111
  7. INVEGA [Suspect]
     Active Substance: PALIPERIDONE
     Route: 048
     Dates: start: 20120410, end: 20140710
  8. RISPERIDONE [Suspect]
     Active Substance: RISPERIDONE
     Indication: Product used for unknown indication
     Route: 065

REACTIONS (3)
  - Weight increased [Unknown]
  - Emotional disorder [Unknown]
  - Gynaecomastia [Unknown]
